FAERS Safety Report 12674306 (Version 1)
Quarter: 2016Q3

REPORT INFORMATION
  Report Type: Spontaneous
  Country: IT (occurrence: IT)
  Receive Date: 20160822
  Receipt Date: 20160822
  Transmission Date: 20161109
  Serious: No
  Sender: FDA-Public Use
  Company Number: IT-PSKUSFDA-2015-IT-0013

PATIENT
  Age: 70 Year
  Sex: Female

DRUGS (1)
  1. SANCUSO [Suspect]
     Active Substance: GRANISETRON
     Indication: VOMITING
     Dosage: UNKNOWN

REACTIONS (2)
  - Drug ineffective [Unknown]
  - Application site discolouration [Unknown]
